FAERS Safety Report 9127448 (Version 1)
Quarter: 2013Q1

REPORT INFORMATION
  Report Type: Spontaneous
  Country: KR (occurrence: KR)
  Receive Date: 20130122
  Receipt Date: 20130122
  Transmission Date: 20140127
  Serious: Yes (Other)
  Sender: FDA-Public Use
  Company Number: KR-ELI_LILLY_AND_COMPANY-KR201301004800

PATIENT
  Sex: 0

DRUGS (2)
  1. HUMULIN NPH [Suspect]
     Indication: GESTATIONAL DIABETES
     Dosage: 20 U, BID
     Route: 064
  2. HUMULIN NPH [Suspect]
     Dosage: 40 U, BID
     Route: 064

REACTIONS (2)
  - Premature baby [Unknown]
  - Foetal exposure during pregnancy [Recovered/Resolved]
